FAERS Safety Report 6266161-7 (Version None)
Quarter: 2009Q3

REPORT INFORMATION
  Report Type: 
  Country: None (occurrence: None)
  Receive Date: 20090709
  Receipt Date: 20090702
  Transmission Date: 20100115
  Serious: Yes (Life-Threatening, Hospitalization, Other)
  Sender: FDA-Public Use
  Company Number: GXKR2009DE07619

PATIENT
  Age: 61 Year
  Sex: Female
  Weight: 55 kg

DRUGS (2)
  1. THIAMAZOL HEXAL (NGX) (THIAMAZOLE) TABLET, 10 MG [Suspect]
     Indication: HYPERTHYROIDISM
     Dosage: 10 MG DAILY, OROPHARINGEAL; 5 MG DAILY, OROPHARINGEAL
     Route: 049
     Dates: start: 20090120, end: 20090320
  2. THIAMAZOL HEXAL (NGX) (THIAMAZOLE) TABLET, 10 MG [Suspect]
     Indication: HYPERTHYROIDISM
     Dosage: 10 MG DAILY, OROPHARINGEAL; 5 MG DAILY, OROPHARINGEAL
     Route: 049
     Dates: start: 20090321, end: 20090412

REACTIONS (1)
  - PANCREATITIS ACUTE [None]
